FAERS Safety Report 7445407-3 (Version None)
Quarter: 2011Q2

REPORT INFORMATION
  Report Type: 
  Country: None (occurrence: None)
  Receive Date: 20110429
  Receipt Date: 20110426
  Transmission Date: 20111010
  Serious: Yes (Death, Hospitalization)
  Sender: FDA-Public Use
  Company Number: PHHY2011BR35271

PATIENT
  Sex: Male

DRUGS (1)
  1. TRILEPTAL [Suspect]
     Dosage: 600 MG, BID

REACTIONS (4)
  - DISORIENTATION [None]
  - WEIGHT DECREASED [None]
  - METASTATIC MALIGNANT MELANOMA [None]
  - SPINAL DISORDER [None]
